FAERS Safety Report 8551781-7 (Version None)
Quarter: 2012Q3

REPORT INFORMATION
  Report Type: 
  Country: None (occurrence: None)
  Receive Date: 20120730
  Receipt Date: 20120720
  Transmission Date: 20120928
  Serious: Yes (Hospitalization, Other)
  Sender: FDA-Public Use
  Company Number: DE-ELI_LILLY_AND_COMPANY-DE201207000564

PATIENT
  Sex: Male

DRUGS (13)
  1. SYMBICORT [Concomitant]
  2. PLAVIX [Concomitant]
     Dosage: 75 MG, UNKNOWN
  3. FORTEO [Suspect]
     Indication: OSTEOPOROSIS
     Dosage: UNK
     Route: 058
     Dates: start: 20111221, end: 20120630
  4. AMLODIPINE [Concomitant]
     Indication: BLOOD PRESSURE
  5. PREDNISOLONE [Concomitant]
     Dosage: 1 MG, UNKNOWN
  6. THEOPHYLLINE [Concomitant]
     Dosage: 250 MG, UNKNOWN
  7. SIMVASTATIN [Concomitant]
     Dosage: 40 MG, UNKNOWN
  8. PANTOPRAZOLE [Concomitant]
     Dosage: 40 MG, UNKNOWN
  9. FORTEO [Suspect]
     Dosage: UNK
     Dates: start: 20120714
  10. PREDNISOLONE [Concomitant]
     Dosage: 2 MG, UNK
  11. NORVASC [Concomitant]
     Dosage: 5 MG, UNKNOWN
  12. CALCILAC [Concomitant]
  13. L-THYROXIN ^HENNING GEORGE^ [Concomitant]
     Dosage: 125 UG, UNKNOWN

REACTIONS (10)
  - SYNCOPE [None]
  - CHEST PAIN [None]
  - URINARY INCONTINENCE [None]
  - PRESYNCOPE [None]
  - LOSS OF CONSCIOUSNESS [None]
  - CIRCULATORY COLLAPSE [None]
  - PAIN IN EXTREMITY [None]
  - MUSCLE SPASMS [None]
  - AURA [None]
  - DYSKINESIA [None]
